FAERS Safety Report 11290624 (Version 1)
Quarter: 2015Q3

REPORT INFORMATION
  Report Type: Spontaneous
  Country: IT (occurrence: None)
  Receive Date: 20150720
  Receipt Date: 20150720
  Transmission Date: 20151125
  Serious: Yes (Death)
  Sender: FDA-Public Use
  Company Number: KAD201507-002241

PATIENT
  Age: 59 Year
  Sex: Male

DRUGS (6)
  1. RIBAVIRIN (RIBAVIRIN) [Suspect]
     Active Substance: RIBAVIRIN
     Indication: CHRONIC HEPATITIS C
     Route: 048
     Dates: start: 20150328, end: 20150706
  2. MEDROL [Concomitant]
     Active Substance: METHYLPREDNISOLONE
  3. SPIRONOLACTONE. [Concomitant]
     Active Substance: SPIRONOLACTONE
  4. MYCOPHENOLATE MOFETIL. [Concomitant]
     Active Substance: MYCOPHENOLATE MOFETIL
  5. FUROSEMIDE. [Concomitant]
     Active Substance: FUROSEMIDE
  6. SOFOSBUVIR (SOFOSBUVIR) [Suspect]
     Active Substance: SOFOSBUVIR
     Indication: HEPATITIS C
     Route: 048
     Dates: start: 20150323, end: 20150706

REACTIONS (6)
  - Blood creatinine increased [None]
  - International normalised ratio increased [None]
  - Haemoglobin decreased [None]
  - Cardiac arrest [None]
  - Blood bilirubin increased [None]
  - Interstitial lung disease [None]

NARRATIVE: CASE EVENT DATE: 20150706
